FAERS Safety Report 5321937-5 (Version None)
Quarter: 2007Q2

REPORT INFORMATION
  Report Type: 
  Country: None (occurrence: None)
  Receive Date: 20070511
  Receipt Date: 20070502
  Transmission Date: 20071010
  Serious: Yes (Other)
  Sender: FDA-Public Use
  Company Number: AU-JNJFOC-20070500008

PATIENT
  Sex: Female
  Weight: 90 kg

DRUGS (2)
  1. DURAGESIC-100 [Suspect]
     Indication: PAIN
     Route: 062
  2. OXYNORM [Concomitant]
     Indication: PAIN
     Route: 048

REACTIONS (2)
  - BREAKTHROUGH PAIN [None]
  - PHARMACEUTICAL PRODUCT COMPLAINT [None]
